FAERS Safety Report 11967299 (Version 2)
Quarter: 2016Q1

REPORT INFORMATION
  Report Type: Spontaneous
  Country: US (occurrence: US)
  Receive Date: 20160127
  Receipt Date: 20160225
  Transmission Date: 20160526
  Serious: No
  Sender: FDA-Public Use
  Company Number: US-KERYX BIOPHARMACEUTICALS, INC.-2016US001532

PATIENT
  Sex: Male

DRUGS (13)
  1. VENOFER [Concomitant]
     Active Substance: IRON SUCROSE
     Dosage: 200 MG/WEEK,  MONTH 3
     Route: 042
  2. ARANESP [Concomitant]
     Active Substance: DARBEPOETIN ALFA
     Dosage: 200 MICRO-G, MONTH 2
  3. VENOFER [Concomitant]
     Active Substance: IRON SUCROSE
     Dosage: 200 MG/WEEK,  MONTH 4
     Route: 042
  4. ARANESP [Concomitant]
     Active Substance: DARBEPOETIN ALFA
     Dosage: 200 MICRO-G, MONTH 3
  5. AURYXIA [Suspect]
     Active Substance: TETRAFERRIC TRICITRATE DECAHYDRATE
     Indication: BLOOD PHOSPHORUS INCREASED
     Dosage: 3 TAB, QD, MONTH 1
     Dates: start: 201510
  6. VENOFER [Concomitant]
     Active Substance: IRON SUCROSE
     Dosage: 200 MG/WEEK,  MONTH 2
     Route: 042
  7. ARANESP [Concomitant]
     Active Substance: DARBEPOETIN ALFA
     Dosage: 200 MICRO-G, MONTH 1
  8. ARANESP [Concomitant]
     Active Substance: DARBEPOETIN ALFA
     Dosage: 150 MICRO-G, START OF AURYXIA
  9. AURYXIA [Suspect]
     Active Substance: TETRAFERRIC TRICITRATE DECAHYDRATE
     Dosage: 6 TAB, QD, MONTH 4
  10. VENOFER [Concomitant]
     Active Substance: IRON SUCROSE
     Dosage: 100 MG/WEEK, START OF AURYXIA
     Route: 042
  11. ARANESP [Concomitant]
     Active Substance: DARBEPOETIN ALFA
     Dosage: 200 MICRO-G, MONTH 4
  12. AURYXIA [Suspect]
     Active Substance: TETRAFERRIC TRICITRATE DECAHYDRATE
     Dosage: 3 TAB, QD, MONTH 2
  13. AURYXIA [Suspect]
     Active Substance: TETRAFERRIC TRICITRATE DECAHYDRATE
     Dosage: 6 TAB, QD, MONTH 3

REACTIONS (1)
  - Diarrhoea [Recovered/Resolved]
